FAERS Safety Report 7970461-X (Version None)
Quarter: 2011Q4

REPORT INFORMATION
  Report Type: 
  Country: None (occurrence: None)
  Receive Date: 20111212
  Receipt Date: 20111201
  Transmission Date: 20120403
  Serious: Yes (Hospitalization)
  Sender: FDA-Public Use
  Company Number: PHEH2011US01243

PATIENT
  Sex: Male
  Weight: 141 kg

DRUGS (2)
  1. EXJADE [Suspect]
     Indication: IRON METABOLISM DISORDER
  2. EXJADE [Suspect]
     Indication: SICKLE CELL ANAEMIA
     Dosage: 2000 MG, DAILY
     Route: 048
     Dates: start: 20100104

REACTIONS (4)
  - PNEUMONIA [None]
  - ATELECTASIS [None]
  - PLEURAL EFFUSION [None]
  - SICKLE CELL ANAEMIA [None]
